FAERS Safety Report 4917954-7 (Version None)
Quarter: 2006Q1

REPORT INFORMATION
  Report Type: 
  Country: None (occurrence: None)
  Receive Date: 20060221
  Receipt Date: 20051012
  Transmission Date: 20060701
  Serious: Yes (Hospitalization)
  Sender: FDA-Public Use
  Company Number: US-MERCK-0510USA07089

PATIENT
  Age: 80 Year
  Sex: Male
  Weight: 89 kg

DRUGS (7)
  1. VIOXX [Suspect]
     Indication: OSTEOARTHRITIS
     Route: 048
     Dates: start: 19991007, end: 20040930
  2. VIOXX [Suspect]
     Indication: RHEUMATOID ARTHRITIS
     Route: 048
     Dates: start: 19991007, end: 20040930
  3. LODINE [Concomitant]
     Indication: PAIN
     Route: 065
     Dates: start: 20000223, end: 20000401
  4. METHYLPREDNISOLONE [Concomitant]
     Indication: PAIN
     Route: 065
     Dates: start: 19990421, end: 20000601
  5. NAPROXEN [Concomitant]
     Indication: PAIN
     Route: 065
     Dates: start: 19990412, end: 20000601
  6. ULTRAM [Concomitant]
     Indication: PAIN
     Route: 065
     Dates: start: 19991212, end: 20000301
  7. LASIX [Concomitant]
     Indication: FLUID RETENTION
     Route: 065
     Dates: start: 20000429, end: 20000601

REACTIONS (14)
  - ACUTE MYOCARDIAL INFARCTION [None]
  - BLADDER CANCER [None]
  - BLOOD CHOLESTEROL INCREASED [None]
  - CARDIAC FAILURE CONGESTIVE [None]
  - CHEST PAIN [None]
  - DEEP VEIN THROMBOSIS [None]
  - HYPERTENSION [None]
  - HYPOKALAEMIA [None]
  - IRON DEFICIENCY [None]
  - PAIN IN EXTREMITY [None]
  - PROSTATE CANCER [None]
  - PULMONARY OEDEMA [None]
  - RESPIRATORY DISORDER [None]
  - SKIN CANCER [None]
